FAERS Safety Report 18868664 (Version 4)
Quarter: 2021Q3

REPORT INFORMATION
  Report Type: Report from Study
  Country: DE (occurrence: DE)
  Receive Date: 20210209
  Receipt Date: 20210708
  Transmission Date: 20211014
  Serious: Yes (Death, Hospitalization)
  Sender: FDA-Public Use
  Company Number: DE-JNJFOC-20210137858

PATIENT
  Age: 56 Year
  Sex: Female
  Weight: 66 kg

DRUGS (2)
  1. TRABECTEDIN [Suspect]
     Active Substance: TRABECTEDIN
     Indication: SARCOMA
     Route: 042
     Dates: start: 20201221, end: 20210112
  2. OLAPARIB. [Suspect]
     Active Substance: OLAPARIB
     Indication: SARCOMA
     Route: 048
     Dates: start: 20201221, end: 20210112

REACTIONS (2)
  - Neoplasm progression [Fatal]
  - Presyncope [Recovered/Resolved]

NARRATIVE: CASE EVENT DATE: 20210105
